FAERS Safety Report 7197015-X (Version None)
Quarter: 2010Q4

REPORT INFORMATION
  Report Type: 
  Country: None (occurrence: None)
  Receive Date: 20101224
  Receipt Date: 20101214
  Transmission Date: 20110411
  Serious: Yes (Other)
  Sender: FDA-Public Use
  Company Number: PHHY2010CA83036

PATIENT
  Sex: Female

DRUGS (7)
  1. ZOMETA [Suspect]
     Indication: BREAST CANCER
     Dosage: ONCE EVERY MONTH
     Dates: start: 20060201
  2. ZOMETA [Suspect]
     Dosage: ONCE EVERY SIX WEEKS
  3. ARIMIDEX [Concomitant]
     Dosage: UNK
     Dates: start: 20060101
  4. VITAMIN D [Concomitant]
     Dosage: 2000 UI
  5. CALCIUM [Concomitant]
     Dosage: 2000 MG, UNK
  6. CHEMOTHERAPEUTICS NOS [Concomitant]
  7. RADIATION THERAPY [Concomitant]

REACTIONS (10)
  - ARTICULAR CALCIFICATION [None]
  - BONE DENSITY DECREASED [None]
  - BONE PAIN [None]
  - CYST [None]
  - DRUG INEFFECTIVE [None]
  - FATIGUE [None]
  - INFLAMMATION [None]
  - INFLUENZA LIKE ILLNESS [None]
  - OSTEOPOROSIS [None]
  - TENDON RUPTURE [None]
